FAERS Safety Report 25711635 (Version 2)
Quarter: 2025Q4

REPORT INFORMATION
  Report Type: Spontaneous
  Country: JP (occurrence: JP)
  Receive Date: 20250821
  Receipt Date: 20251105
  Transmission Date: 20260117
  Serious: Yes (Hospitalization, Other)
  Sender: DAIICHI
  Company Number: JP-DSJP-DS-2025-159787-JP

PATIENT
  Age: 39 Year
  Sex: Female
  Weight: 53.3 kg

DRUGS (18)
  1. ENHERTU [Suspect]
     Active Substance: FAM-TRASTUZUMAB DERUXTECAN-NXKI
     Indication: HER2 low breast cancer
     Dosage: 5.4 MG/KG, ONCE EVERY 3 WK
     Route: 041
     Dates: start: 20250617, end: 20250617
  2. ENHERTU [Suspect]
     Active Substance: FAM-TRASTUZUMAB DERUXTECAN-NXKI
     Dosage: 5.4 MG/KG, ONCE EVERY 3 WK
     Route: 041
     Dates: start: 20250708, end: 20250708
  3. ENHERTU [Suspect]
     Active Substance: FAM-TRASTUZUMAB DERUXTECAN-NXKI
     Dosage: 5.4 MG/KG, ONCE EVERY 3 WK
     Route: 041
     Dates: start: 20250729, end: 20250729
  4. ALOXI [Concomitant]
     Active Substance: PALONOSETRON HYDROCHLORIDE
     Indication: Antiemetic supportive care
     Dosage: 0.75 MG, QD
     Route: 042
     Dates: start: 20231121, end: 20250729
  5. FOSNETUPITANT CHLORIDE HYDROCHLORIDE [Concomitant]
     Active Substance: FOSNETUPITANT CHLORIDE HYDROCHLORIDE
     Indication: Antiemetic supportive care
     Dosage: 235 MG, QD
     Route: 042
     Dates: start: 20250617, end: 20250729
  6. DEXAMETHASONE SODIUM PHOSPHATE [Concomitant]
     Active Substance: DEXAMETHASONE SODIUM PHOSPHATE
     Indication: Antiemetic supportive care
     Dosage: 6.6 MG, QD
     Route: 042
     Dates: start: 20231114, end: 20251007
  7. DECADRON [Concomitant]
     Active Substance: DEXAMETHASONE
     Indication: Antiemetic supportive care
     Dosage: 8 MG, QD
     Route: 048
     Dates: start: 20231113, end: 20250731
  8. ZYPREXA [Concomitant]
     Active Substance: OLANZAPINE
     Indication: Antiemetic supportive care
     Dosage: 5 MG, QD
     Route: 048
     Dates: start: 20240917, end: 20251007
  9. ALPRAZOLAM TOWA [Concomitant]
     Indication: Antiemetic supportive care
     Dosage: 0.4 MG, TID
     Route: 048
     Dates: start: 20240110, end: 20250909
  10. ATARAX P [HYDROXYZINE HYDROCHLORIDE] [Concomitant]
     Indication: Antiemetic supportive care
     Dosage: 25 MG, BID
     Route: 048
     Dates: start: 20240220, end: 20251007
  11. VONOPRAZAN FUMARATE [Concomitant]
     Active Substance: VONOPRAZAN FUMARATE
     Indication: Antacid therapy
     Dosage: 10 MG, QD
     Route: 048
     Dates: start: 20231006, end: 20251007
  12. OXYCODONE HYDROCHLORIDE [Concomitant]
     Active Substance: OXYCODONE HYDROCHLORIDE
     Indication: Cancer pain
     Dosage: 40 MG, BID
     Route: 048
     Dates: start: 20231209, end: 20251007
  13. OXYCODONE HYDROCHLORIDE [Concomitant]
     Active Substance: OXYCODONE HYDROCHLORIDE
     Indication: Cancer pain
     Dosage: 10 MG, AS NEEDED
     Route: 048
     Dates: start: 20231114, end: 20251007
  14. SYMPROIC [Concomitant]
     Active Substance: NALDEMEDINE TOSYLATE
     Indication: Constipation
     Dosage: 0.2 MG, QD
     Route: 048
     Dates: start: 20231018, end: 20251007
  15. ZOLPIDEM TARTRATE OD SAWAI [Concomitant]
     Indication: Insomnia
     Dosage: 5 MG, QD
     Route: 048
     Dates: start: 20230926, end: 20251007
  16. DOMPERIDONE [Concomitant]
     Active Substance: DOMPERIDONE
     Indication: Antiemetic supportive care
     Dosage: 10 MG, AS NEEDED
     Route: 048
     Dates: start: 20231114, end: 20250729
  17. LOPERAMIDE HYDROCHLORIDE [Concomitant]
     Active Substance: LOPERAMIDE HYDROCHLORIDE
     Indication: Diarrhoea
     Dosage: 1 MG, AS NEEDED
     Route: 048
     Dates: start: 20250401, end: 20250811
  18. POLARAMINE [Concomitant]
     Active Substance: DEXCHLORPHENIRAMINE MALEATE
     Indication: Rash
     Dosage: 2 MG, AS NEEDED
     Route: 048
     Dates: start: 20250722

REACTIONS (6)
  - Enterocolitis [Recovered/Resolved]
  - Neutropenia [Unknown]
  - Hypokalaemia [Recovered/Resolved]
  - Hypophosphataemia [Recovered/Resolved]
  - Lung opacity [Unknown]
  - Anaemia [Unknown]

NARRATIVE: CASE EVENT DATE: 20250806
